FAERS Safety Report 18606167 (Version 1)
Quarter: 2020Q4

REPORT INFORMATION
  Report Type: Spontaneous
  Country: US (occurrence: US)
  Receive Date: 20201211
  Receipt Date: 20201211
  Transmission Date: 20210114
  Serious: No
  Sender: FDA-Public Use
  Company Number: US-PFIZER INC-2020427739

PATIENT
  Age: 54 Year
  Sex: Female

DRUGS (1)
  1. IBRANCE [Suspect]
     Active Substance: PALBOCICLIB
     Indication: BREAST CANCER FEMALE
     Dosage: 125 MG, CYCLIC (125MG TAB PO (ORAL) X 21D)
     Route: 048
     Dates: start: 20190810

REACTIONS (2)
  - COVID-19 [Not Recovered/Not Resolved]
  - Product dose omission issue [Unknown]
